FAERS Safety Report 5595099-3 (Version None)
Quarter: 2008Q1

REPORT INFORMATION
  Report Type: 
  Country: None (occurrence: None)
  Receive Date: 20080117
  Receipt Date: 20080107
  Transmission Date: 20080703
  Serious: Yes (Hospitalization)
  Sender: FDA-Public Use
  Company Number: JP-SANOFI-SYNTHELABO-A01200714351

PATIENT
  Age: 56 Year
  Sex: Male
  Weight: 64.5 kg

DRUGS (5)
  1. DIAZEPAM [Concomitant]
     Indication: HEADACHE
     Route: 048
     Dates: start: 20071107, end: 20071121
  2. DIAZEPAM [Concomitant]
     Indication: INSOMNIA
     Route: 048
     Dates: start: 20071107, end: 20071121
  3. MUCOSTA [Concomitant]
     Indication: GASTRITIS PROPHYLAXIS
     Route: 048
     Dates: start: 20070416, end: 20071207
  4. PLAVIX [Suspect]
     Indication: CEREBRAL INFARCTION
     Route: 048
     Dates: start: 20070417, end: 20071207
  5. LENDORMIN [Concomitant]
     Dosage: UNK
     Route: 065

REACTIONS (1)
  - LUNG DISORDER [None]
